FAERS Safety Report 5035720-1 (Version None)
Quarter: 2006Q2

REPORT INFORMATION
  Report Type: 
  Country: None (occurrence: None)
  Receive Date: 20060627
  Receipt Date: 20060601
  Transmission Date: 20061013
  Serious: Yes (Hospitalization)
  Sender: FDA-Public Use
  Company Number: FR-AVENTIS-200612036FR

PATIENT
  Age: 81 Year
  Sex: Female

DRUGS (8)
  1. LANTUS [Suspect]
     Indication: DIABETES MELLITUS NON-INSULIN-DEPENDENT
     Route: 058
     Dates: start: 20060413
  2. EPINITRIL [Concomitant]
  3. PLAVIX [Concomitant]
     Route: 048
  4. ADANCOR [Concomitant]
     Route: 048
  5. ATACAND [Concomitant]
     Route: 048
  6. MOPRAL [Concomitant]
     Route: 048
  7. IMOVANE [Concomitant]
     Route: 048
  8. LASILIX [Concomitant]
     Route: 048

REACTIONS (1)
  - RENAL FAILURE [None]
